FAERS Safety Report 6203251-9 (Version None)
Quarter: 2009Q2

REPORT INFORMATION
  Report Type: 
  Country: None (occurrence: None)
  Receive Date: 20090527
  Receipt Date: 20090514
  Transmission Date: 20091009
  Serious: Yes (Hospitalization)
  Sender: FDA-Public Use
  Company Number: HU-ROCHE-632875

PATIENT
  Sex: Female
  Weight: 55.3 kg

DRUGS (5)
  1. PEG-INTERFERON ALFA 2A (RO 25-8310) [Suspect]
     Dosage: ROUTE MENTIONED AS 4X.
     Route: 050
     Dates: start: 20081127
  2. RIBAVIRIN [Suspect]
     Dosage: ROUTE MENTIONED AS 168X.
     Route: 050
     Dates: start: 20081127
  3. VALSARTAN [Concomitant]
     Dates: start: 20081015
  4. AMLODIPINE [Concomitant]
     Dates: start: 20081015
  5. CARVEDILOL [Concomitant]
     Dates: start: 20080723

REACTIONS (1)
  - VERTIGO [None]
